FAERS Safety Report 6198193-1 (Version None)
Quarter: 2009Q2

REPORT INFORMATION
  Report Type: 
  Country: None (occurrence: None)
  Receive Date: 20090521
  Receipt Date: 20090512
  Transmission Date: 20091009
  Serious: Yes (Other)
  Sender: FDA-Public Use
  Company Number: ES-MERCK-0905ESP00017

PATIENT
  Age: 86 Year
  Sex: Female

DRUGS (9)
  1. FOSAMAX [Suspect]
     Indication: OSTEOPOROSIS
     Route: 048
     Dates: start: 20050801, end: 20080901
  2. FOSAMAX PLUS D [Suspect]
     Indication: OSTEOPOROSIS
     Route: 048
     Dates: start: 20080901, end: 20081001
  3. AMLODIPINE [Concomitant]
     Route: 048
  4. OMEPRAZOLE [Concomitant]
     Route: 048
  5. ATORVASTATIN CALCIUM [Concomitant]
     Route: 048
  6. ACETAMINOPHEN [Concomitant]
     Route: 048
  7. CALCIUM CARBONATE AND CHOLECALCIFEROL [Concomitant]
     Route: 048
  8. LOVASTATIN [Concomitant]
     Route: 048
  9. ALBUTEROL SULFATE [Concomitant]

REACTIONS (2)
  - OSTEONECROSIS [None]
  - TOOTH LOSS [None]
